FAERS Safety Report 9844685 (Version 1)
Quarter: 2014Q1

REPORT INFORMATION
  Report Type: Spontaneous
  Country: US (occurrence: None)
  Receive Date: 20140122
  Receipt Date: 20140122
  Transmission Date: 20141002
  Serious: Yes (Death)
  Sender: FDA-Public Use
  Company Number: B0959211A

PATIENT
  Age: 61 Year
  Sex: Female

DRUGS (2)
  1. BUPROPION HYDROCHLORIDE [Suspect]
     Route: 048
  2. AMITRIPTYLINE [Suspect]
     Route: 048

REACTIONS (3)
  - Completed suicide [None]
  - Overdose [None]
  - Cardio-respiratory arrest [None]
